FAERS Safety Report 4963788-7 (Version None)
Quarter: 2006Q1

REPORT INFORMATION
  Report Type: 
  Country: None (occurrence: None)
  Receive Date: 20060330
  Receipt Date: 20060317
  Transmission Date: 20060701
  Serious: Yes (Other)
  Sender: FDA-Public Use
  Company Number: 2006038468

PATIENT
  Age: 63 Year
  Sex: Male
  Weight: 136.0791 kg

DRUGS (11)
  1. VIBRAMYCIN [Suspect]
     Indication: CELLULITIS
     Dosage: 200 MG (100 MG, 2 IN 1 D)
     Dates: start: 20050913
  2. METFORMIN HCL [Concomitant]
  3. LISINOPRIL [Concomitant]
  4. FAMOTIDINE [Concomitant]
  5. AMITRIPTYLINE (AMITRIPTYLINE) [Concomitant]
  6. METOPROLOL (METOPROLOL) [Concomitant]
  7. FUROSEMIDE [Concomitant]
  8. FLUOXETINE [Concomitant]
  9. HUMALOG [Concomitant]
  10. LANTUS [Concomitant]
  11. ACETAMINOPHEN [Concomitant]

REACTIONS (2)
  - HYPOACUSIS [None]
  - TINNITUS [None]
